FAERS Safety Report 10044429 (Version 1)
Quarter: 2014Q1

REPORT INFORMATION
  Report Type: Report from Study
  Country: US (occurrence: US)
  Receive Date: 20140328
  Receipt Date: 20140328
  Transmission Date: 20141002
  Serious: Yes (Other)
  Sender: FDA-Public Use
  Company Number: US-ELI_LILLY_AND_COMPANY-US201403008475

PATIENT
  Age: 50 Year
  Sex: Female

DRUGS (4)
  1. DULOXETINE HYDROCHLORIDE [Suspect]
     Indication: ARTHRITIS
     Dosage: 30 MG, QD
     Route: 065
  2. DULOXETINE HYDROCHLORIDE [Suspect]
     Dosage: 30 MG, QOD
     Route: 065
     Dates: start: 20140314
  3. MELOXICAM [Concomitant]
  4. OXYBUTYNIN [Concomitant]

REACTIONS (20)
  - Suicidal ideation [Unknown]
  - Balance disorder [Unknown]
  - Confusional state [Unknown]
  - Nightmare [Unknown]
  - Thinking abnormal [Unknown]
  - Headache [Unknown]
  - Disturbance in attention [Unknown]
  - Asthenia [Unknown]
  - Feeling abnormal [Unknown]
  - Pollakiuria [Unknown]
  - Frequent bowel movements [Unknown]
  - Arthralgia [Not Recovered/Not Resolved]
  - Feeling hot [Unknown]
  - Hyperhidrosis [Unknown]
  - Flushing [Unknown]
  - Memory impairment [Unknown]
  - Anxiety [Unknown]
  - Irritability [Unknown]
  - Drug withdrawal syndrome [Unknown]
  - Dry mouth [Unknown]
